FAERS Safety Report 8788779 (Version 1)
Quarter: 2012Q4

REPORT INFORMATION
  Report Type: Report from Study
  Country: CA (occurrence: CA)
  Receive Date: 20120917
  Receipt Date: 20120917
  Transmission Date: 20130627
  Serious: Yes (Other)
  Sender: FDA-Public Use
  Company Number: CA-JNJFOC-20120902910

PATIENT
  Age: 37 Year
  Sex: Male
  Weight: 89 kg

DRUGS (2)
  1. REMICADE [Suspect]
     Indication: PSORIASIS
     Route: 042
  2. REMICADE [Suspect]
     Indication: PSORIASIS
     Dosage: 2 infusions to date
     Route: 042
     Dates: start: 20120905

REACTIONS (5)
  - Arthralgia [Unknown]
  - Pruritus [Unknown]
  - Skin plaque [Unknown]
  - Urticaria [Unknown]
  - Infusion related reaction [Unknown]
